FAERS Safety Report 24931414 (Version 1)
Quarter: 2025Q1

REPORT INFORMATION
  Report Type: Report from Study
  Country: US (occurrence: US)
  Receive Date: 20250205
  Receipt Date: 20250205
  Transmission Date: 20250409
  Serious: Yes (Other)
  Sender: AURINIA PHARMACEUTICALS
  Company Number: US-OTSUKA PHARMACEUTICAL NETHERLANDS B.V.-AUR-007214

PATIENT
  Age: 24 Year
  Sex: Female

DRUGS (4)
  1. LUPKYNIS [Suspect]
     Active Substance: VOCLOSPORIN
     Indication: Lupus nephritis
     Dosage: 23.7 MILLIGRAM, BID
     Route: 048
     Dates: start: 20241024
  2. LUPKYNIS [Suspect]
     Active Substance: VOCLOSPORIN
     Dosage: 7.9 MILLIGRAM, BID
     Route: 048
  3. LUPKYNIS [Suspect]
     Active Substance: VOCLOSPORIN
     Dosage: 15.8 MILLIGRAM, BID
     Route: 048
  4. LISINOPRIL [Concomitant]
     Active Substance: LISINOPRIL
     Indication: Blood pressure increased
     Dosage: 30 MILLIGRAM, QD

REACTIONS (15)
  - Blood pressure increased [Recovered/Resolved]
  - Halo vision [Unknown]
  - Aura [Unknown]
  - Strabismus [Unknown]
  - Dizziness [Unknown]
  - Insomnia [Unknown]
  - Pain [Unknown]
  - Pyrexia [Recovered/Resolved]
  - Eyelid ptosis [Recovered/Resolved]
  - Vitreous floaters [Recovered/Resolved]
  - Photophobia [Recovered/Resolved]
  - Fibrin D dimer [Not Recovered/Not Resolved]
  - Chest pain [Not Recovered/Not Resolved]
  - Fatigue [Not Recovered/Not Resolved]
  - Headache [Recovered/Resolved]

NARRATIVE: CASE EVENT DATE: 20241031
